FAERS Safety Report 15363296 (Version 4)
Quarter: 2018Q4

REPORT INFORMATION
  Report Type: Spontaneous
  Country: US (occurrence: JP)
  Receive Date: 20180907
  Receipt Date: 20181126
  Transmission Date: 20190204
  Serious: No
  Sender: FDA-Public Use
  Company Number: US-SUNOVION-2018SUN003055

PATIENT
  Sex: Male

DRUGS (11)
  1. EBASTINE [Concomitant]
     Active Substance: EBASTINE
     Indication: SEASONAL ALLERGY
     Dosage: 10 MG, QD
     Route: 048
     Dates: start: 201604
  2. AMBROXOL HYDROCHLORIDE [Concomitant]
     Active Substance: AMBROXOL HYDROCHLORIDE
     Indication: BRONCHITIS CHRONIC
     Dosage: 15 MG, TID
     Route: 048
     Dates: start: 201604
  3. INDACATEROL AND GLYCOPYRROLATE [Suspect]
     Active Substance: GLYCOPYRROLATE\INDACATEROL MALEATE
     Indication: BRONCHITIS CHRONIC
  4. INDACATEROL AND GLYCOPYRROLATE [Suspect]
     Active Substance: GLYCOPYRROLATE\INDACATEROL MALEATE
     Indication: EMPHYSEMA
     Dosage: 1 DF, QD
     Route: 055
     Dates: start: 201604, end: 20180725
  5. PATANOL [Suspect]
     Active Substance: OLOPATADINE HYDROCHLORIDE
     Indication: CONJUNCTIVITIS ALLERGIC
     Dosage: 2 GTT, QID
     Route: 047
     Dates: start: 20180516
  6. ALVESCO [Concomitant]
     Active Substance: CICLESONIDE
     Indication: EMPHYSEMA
     Dosage: 2 DF, BID
     Route: 055
     Dates: start: 201604
  7. COUGHCODE N [Suspect]
     Active Substance: ACETAMINOPHEN\BROMISOVAL\DIHYDROCODEINE PHOSPHATE\DIPHENHYDRAMINE SALICYLATE\DYPHYLLINE\METHYLEPHEDRINE HYDROCHLORIDE, (+/-)-
     Indication: BRONCHITIS CHRONIC
     Dosage: 1 DF, TID
     Route: 048
     Dates: start: 201604, end: 20180725
  8. MUCOSOLVAN [Concomitant]
     Active Substance: AMBROXOL HYDROCHLORIDE
     Indication: BRONCHITIS CHRONIC
     Dosage: 15 MG, TID
     Route: 048
     Dates: start: 201604
  9. CLARITH [Concomitant]
     Active Substance: CLARITHROMYCIN
     Indication: BRONCHITIS CHRONIC
     Dosage: 200 MG, BID
     Route: 048
     Dates: start: 201604
  10. TRAVATAN Z [Suspect]
     Active Substance: TRAVOPROST
     Indication: ANGLE CLOSURE GLAUCOMA
     Dosage: 1-2 GTT, UNK
     Route: 047
     Dates: start: 20130326
  11. HYALEIN [Concomitant]
     Active Substance: HYALURONATE SODIUM
     Indication: DRY EYE
     Dosage: 2 GTT, UNK
     Route: 047
     Dates: start: 20140118

REACTIONS (3)
  - Emphysema [Unknown]
  - Contraindicated product administered [Unknown]
  - Condition aggravated [Unknown]
